FAERS Safety Report 13775213 (Version 1)
Quarter: 2017Q3

REPORT INFORMATION
  Report Type: Spontaneous
  Country: CA (occurrence: CA)
  Receive Date: 20170720
  Receipt Date: 20170720
  Transmission Date: 20171127
  Serious: Yes (Death, Other)
  Sender: FDA-Public Use
  Company Number: CA-PFIZER INC-1637935

PATIENT
  Age: 4 Year
  Sex: Female
  Weight: 14 kg

DRUGS (5)
  1. CEFTRIAXONE. [Concomitant]
     Active Substance: CEFTRIAXONE
     Indication: MENINGITIS MENINGOCOCCAL
     Dosage: NOT REPORTED
     Route: 042
  2. VANCOMYCIN [Concomitant]
     Active Substance: VANCOMYCIN
     Indication: MENINGITIS MENINGOCOCCAL
     Dosage: NOT REPORTED
     Route: 042
  3. NORMAL SALINE [Concomitant]
     Active Substance: SODIUM CHLORIDE
     Indication: PRODUCT USED FOR UNKNOWN INDICATION
     Dosage: 20 ML/KG
     Route: 040
  4. GLUCOSE/SODIUM CHLORIDE [Suspect]
     Active Substance: DEXTROSE\SODIUM CHLORIDE
     Indication: FLUID REPLACEMENT
     Dosage: 50 ML/H
     Route: 042
  5. KCL [Concomitant]
     Active Substance: POTASSIUM CHLORIDE
     Indication: FLUID REPLACEMENT
     Dosage: 20 MMOL/L
     Route: 042

REACTIONS (7)
  - Respiratory arrest [Fatal]
  - Seizure [Unknown]
  - Lethargy [Unknown]
  - Brain herniation [Fatal]
  - Brain oedema [Fatal]
  - Hyponatraemia [Fatal]
  - Cardiac arrest [Fatal]
